FAERS Safety Report 24012299 (Version 3)
Quarter: 2024Q3

REPORT INFORMATION
  Report Type: Spontaneous
  Country: JP (occurrence: JP)
  Receive Date: 20240625
  Receipt Date: 20240927
  Transmission Date: 20241017
  Serious: Yes (Other)
  Sender: BRISTOL MYERS SQUIBB
  Company Number: JP-BRISTOL-MYERS SQUIBB COMPANY-2024-076620

PATIENT
  Age: 26 Year
  Sex: Male

DRUGS (9)
  1. SOTYKTU [Suspect]
     Active Substance: DEUCRAVACITINIB
     Indication: Psoriasis
     Route: 048
     Dates: start: 20231002, end: 20240116
  2. OLOPATADINE [Concomitant]
     Active Substance: OLOPATADINE
     Indication: Psoriasis
     Dosage: 2 TOTAL
  3. OLOPATADINE [Concomitant]
     Active Substance: OLOPATADINE
     Indication: Pruritus
  4. BILANOA OD [Concomitant]
     Indication: Psoriasis
     Dosage: 1 TOTAL
  5. BILANOA OD [Concomitant]
     Indication: Pruritus
  6. BETAMETHASONE DIPROPIONATE\CALCIPOTRIENE MONOHYDRATE [Concomitant]
     Active Substance: BETAMETHASONE DIPROPIONATE\CALCIPOTRIENE MONOHYDRATE
     Indication: Psoriasis
  7. BETAMETHASONE DIPROPIONATE\CALCIPOTRIENE MONOHYDRATE [Concomitant]
     Active Substance: BETAMETHASONE DIPROPIONATE\CALCIPOTRIENE MONOHYDRATE
     Indication: Pruritus
  8. BETAMETHASONE BUTYRATE PROPIONATE\MAXACALCITOL [Concomitant]
     Active Substance: BETAMETHASONE BUTYRATE PROPIONATE\MAXACALCITOL
     Indication: Psoriasis
  9. BETAMETHASONE BUTYRATE PROPIONATE\MAXACALCITOL [Concomitant]
     Active Substance: BETAMETHASONE BUTYRATE PROPIONATE\MAXACALCITOL
     Indication: Pruritus

REACTIONS (3)
  - Acne [Recovered/Resolved]
  - Subcutaneous abscess [Recovering/Resolving]
  - Staphylococcal infection [Unknown]
